FAERS Safety Report 11360946 (Version 2)
Quarter: 2015Q3

REPORT INFORMATION
  Report Type: Report from Study
  Country: GB (occurrence: GB)
  Receive Date: 20150810
  Receipt Date: 20150817
  Transmission Date: 20151125
  Serious: Yes (Life-Threatening, Hospitalization)
  Sender: FDA-Public Use
  Company Number: GB-NOVOPROD-459377

PATIENT
  Age: 72 Year
  Sex: Male
  Weight: 85.8 kg

DRUGS (1)
  1. LIRAGLUTIDE FLEXPEN [Suspect]
     Active Substance: LIRAGLUTIDE
     Indication: TYPE 2 DIABETES MELLITUS
     Dosage: 1.8 MG, QD
     Dates: start: 20120316

REACTIONS (1)
  - Percutaneous coronary intervention [Recovered/Resolved]

NARRATIVE: CASE EVENT DATE: 20150714
